FAERS Safety Report 15674680 (Version 1)
Quarter: 2018Q4

REPORT INFORMATION
  Report Type: Spontaneous
  Country: CO (occurrence: CO)
  Receive Date: 20181130
  Receipt Date: 20181130
  Transmission Date: 20190205
  Serious: Yes (Other)
  Sender: FDA-Public Use
  Company Number: CO-JNJFOC-20181138049

PATIENT

DRUGS (2)
  1. NEUTROGENA ULTRA SHEER DRY TOUCH SUNBLOCK SPF 100 PLUS [Suspect]
     Active Substance: AVOBENZONE\HOMOSALATE\OCTISALATE\OCTOCRYLENE\OXYBENZONE
     Indication: PROPHYLAXIS
     Route: 061
     Dates: start: 20171001, end: 20171001
  2. NEUTROGENA BEACH DEFENSE WATER PLUS SUN PROTECTION SUNSCREEN BROAD SPECTRUM SPF70 [Suspect]
     Active Substance: AVOBENZONE\HOMOSALATE\OCTISALATE\OCTOCRYLENE\OXYBENZONE
     Indication: TANNING
     Route: 061

REACTIONS (3)
  - Expired product administered [Unknown]
  - Malignant melanoma [Unknown]
  - Product quality issue [Unknown]

NARRATIVE: CASE EVENT DATE: 201710
